FAERS Safety Report 10974016 (Version 20)
Quarter: 2017Q2

REPORT INFORMATION
  Report Type: Spontaneous
  Country: CA (occurrence: CA)
  Receive Date: 20150401
  Receipt Date: 20170607
  Transmission Date: 20170829
  Serious: Yes (Hospitalization, Other)
  Sender: FDA-Public Use
  Company Number: CA-ROCHE-1458856

PATIENT
  Age: 69 Year
  Sex: Male

DRUGS (28)
  1. XOLAIR [Suspect]
     Active Substance: OMALIZUMAB
     Dosage: UNK
     Route: 058
     Dates: start: 20160307
  2. XOLAIR [Suspect]
     Active Substance: OMALIZUMAB
     Dosage: UNK
     Route: 058
     Dates: start: 20170109
  3. XOLAIR [Suspect]
     Active Substance: OMALIZUMAB
     Dosage: UNK
     Route: 058
     Dates: start: 20140703
  4. XOLAIR [Suspect]
     Active Substance: OMALIZUMAB
     Dosage: UNK
     Route: 058
     Dates: start: 20150331
  5. XOLAIR [Suspect]
     Active Substance: OMALIZUMAB
     Dosage: UNK
     Route: 058
     Dates: start: 20150629
  6. XOLAIR [Suspect]
     Active Substance: OMALIZUMAB
     Dosage: UNK
     Route: 058
     Dates: start: 20160111
  7. XOLAIR [Suspect]
     Active Substance: OMALIZUMAB
     Dosage: UNK
     Route: 058
     Dates: start: 20160919
  8. XOLAIR [Suspect]
     Active Substance: OMALIZUMAB
     Dosage: UNK
     Route: 058
     Dates: start: 20150601
  9. XOLAIR [Suspect]
     Active Substance: OMALIZUMAB
     Dosage: UNK
     Route: 058
     Dates: start: 20160209
  10. XOLAIR [Suspect]
     Active Substance: OMALIZUMAB
     Dosage: UNK
     Route: 058
     Dates: start: 20161017
  11. PREDNISONE. [Suspect]
     Active Substance: PREDNISONE
     Route: 065
     Dates: end: 201410
  12. XOLAIR [Suspect]
     Active Substance: OMALIZUMAB
     Indication: ASTHMA
     Route: 058
     Dates: start: 20140605
  13. XOLAIR [Suspect]
     Active Substance: OMALIZUMAB
     Dosage: UNK
     Route: 058
     Dates: start: 20141009
  14. XOLAIR [Suspect]
     Active Substance: OMALIZUMAB
     Dosage: UNK
     Route: 058
     Dates: start: 20160627
  15. XOLAIR [Suspect]
     Active Substance: OMALIZUMAB
     Dosage: UNK
     Route: 058
     Dates: start: 20170501
  16. PREDNISONE. [Suspect]
     Active Substance: PREDNISONE
     Indication: ASTHMA
     Dosage: 50 FOR 3 DAYS AND THEN DECREASED DOSE EVERY 3 DAYS
     Route: 065
  17. XOLAIR [Suspect]
     Active Substance: OMALIZUMAB
     Dosage: UNK
     Route: 058
     Dates: start: 20160725
  18. XOLAIR [Suspect]
     Active Substance: OMALIZUMAB
     Dosage: UNK
     Route: 058
     Dates: start: 20161114
  19. XOLAIR [Suspect]
     Active Substance: OMALIZUMAB
     Dosage: UNK
     Route: 058
     Dates: start: 20161212
  20. XOLAIR [Suspect]
     Active Substance: OMALIZUMAB
     Dosage: UNK
     Route: 058
     Dates: start: 20170404
  21. XOLAIR [Suspect]
     Active Substance: OMALIZUMAB
     Dosage: UNK
     Route: 058
     Dates: start: 20141211
  22. XOLAIR [Suspect]
     Active Substance: OMALIZUMAB
     Dosage: UNK
     Route: 058
     Dates: start: 20150727
  23. XOLAIR [Suspect]
     Active Substance: OMALIZUMAB
     Dosage: UNK
     Route: 058
     Dates: start: 20151214
  24. XOLAIR [Suspect]
     Active Substance: OMALIZUMAB
     Dosage: UNK
     Route: 058
     Dates: start: 20160530
  25. XOLAIR [Suspect]
     Active Substance: OMALIZUMAB
     Dosage: UNK
     Route: 058
     Dates: start: 20150921
  26. XOLAIR [Suspect]
     Active Substance: OMALIZUMAB
     Dosage: UNK
     Route: 058
     Dates: start: 20160404
  27. XOLAIR [Suspect]
     Active Substance: OMALIZUMAB
     Dosage: UNK
     Route: 058
     Dates: start: 201704
  28. XOLAIR [Suspect]
     Active Substance: OMALIZUMAB
     Dosage: UNK
     Route: 058
     Dates: start: 201705

REACTIONS (33)
  - Rib fracture [Unknown]
  - Blood pressure increased [Unknown]
  - Lethargy [Unknown]
  - Arthralgia [Unknown]
  - Overweight [Unknown]
  - Ingrown hair [Recovering/Resolving]
  - Upper respiratory tract infection [Recovered/Resolved]
  - Headache [Unknown]
  - Myalgia [Unknown]
  - Neck pain [Unknown]
  - Sensitivity to weather change [Unknown]
  - Viral upper respiratory tract infection [Unknown]
  - Haemoglobin decreased [Unknown]
  - Seasonal allergy [Unknown]
  - Chest pain [Unknown]
  - Mobility decreased [Unknown]
  - Weight decreased [Unknown]
  - Respiratory rate increased [Unknown]
  - Nausea [Unknown]
  - Musculoskeletal pain [Unknown]
  - Insomnia [Unknown]
  - Asthma [Recovering/Resolving]
  - Prostate cancer recurrent [Unknown]
  - Drug withdrawal syndrome [Unknown]
  - Injection site haemorrhage [Unknown]
  - Productive cough [Recovered/Resolved]
  - Lower respiratory tract infection [Recovered/Resolved]
  - Dyspepsia [Unknown]
  - Stress [Unknown]
  - Pallor [Unknown]
  - Sleep apnoea syndrome [Unknown]
  - Hypoventilation [Unknown]
  - Cardiac murmur [Unknown]

NARRATIVE: CASE EVENT DATE: 201408
